FAERS Safety Report 4310039-2 (Version None)
Quarter: 2004Q1

REPORT INFORMATION
  Report Type: 
  Country: None (occurrence: None)
  Receive Date: 20040301
  Receipt Date: 20040108
  Transmission Date: 20041129
  Serious: No
  Sender: FDA-Public Use
  Company Number: WAES 0401USA00618

PATIENT
  Age: 75 Year
  Sex: Female

DRUGS (4)
  1. ZETIA [Suspect]
     Indication: HYPERCHOLESTEROLAEMIA
     Dosage: 10 MG/DAILY/PO
     Route: 048
     Dates: start: 20030410, end: 20030415
  2. MAXZIDE [Concomitant]
  3. METOPROLOL [Concomitant]
  4. POTASSIUM (UNSPECIFIED) [Concomitant]

REACTIONS (2)
  - MUSCLE CRAMP [None]
  - STOMACH DISCOMFORT [None]
